FAERS Safety Report 6099197-X (Version None)
Quarter: 2009Q1

REPORT INFORMATION
  Report Type: 
  Country: None (occurrence: None)
  Receive Date: 20090303
  Receipt Date: 20090217
  Transmission Date: 20090719
  Serious: Yes (Other)
  Sender: FDA-Public Use
  Company Number: IL-RANBAXY-2009RR-21925

PATIENT
  Age: 51 Year
  Sex: Male

DRUGS (3)
  1. ATENOLOL [Suspect]
  2. AMLODIPINE [Suspect]
  3. LORATADINE [Suspect]

REACTIONS (1)
  - VASCULITIS [None]
